FAERS Safety Report 23468631 (Version 1)
Quarter: 2024Q1

REPORT INFORMATION
  Report Type: Spontaneous
  Country: US (occurrence: None)
  Receive Date: 20240201
  Receipt Date: 20240201
  Transmission Date: 20240410
  Serious: Yes (Death)
  Sender: FDA-Public Use
  Company Number: None

PATIENT
  Age: 24 Year
  Sex: Female
  Weight: 96.75 kg

DRUGS (10)
  1. OLANZAPINE [Suspect]
     Active Substance: OLANZAPINE
     Indication: Mental disorder
     Dosage: 1 TABLET AT BEDRIME  BY MOUTH?
     Route: 050
     Dates: start: 20231204
  2. OLANZAPINE [Suspect]
     Active Substance: OLANZAPINE
     Dosage: AT BEDTIME BY MOUTH
     Route: 050
  3. LITHOBID [Suspect]
     Active Substance: LITHIUM CARBONATE
  4. MIRALAX [Concomitant]
     Active Substance: POLYETHYLENE GLYCOL 3350
  5. OLANZAPINE [Concomitant]
     Active Substance: OLANZAPINE
  6. FISH OIL [Concomitant]
     Active Substance: FISH OIL
  7. CRYSELLE [Concomitant]
     Active Substance: ETHINYL ESTRADIOL\NORGESTREL
  8. OMEPRAZOLE [Concomitant]
     Active Substance: OMEPRAZOLE
  9. VITAMINS [Concomitant]
     Active Substance: VITAMINS
  10. CALCIUM [Concomitant]
     Active Substance: CALCIUM

REACTIONS (4)
  - Arrhythmogenic right ventricular dysplasia [None]
  - Dilated cardiomyopathy [None]
  - Cardiac arrest [None]
  - Antipsychotic drug level above therapeutic [None]

NARRATIVE: CASE EVENT DATE: 20231205
